FAERS Safety Report 9015581 (Version 1)
Quarter: 2013Q1

REPORT INFORMATION
  Report Type: Spontaneous
  Country: US (occurrence: None)
  Receive Date: 20130102
  Receipt Date: 20130102
  Transmission Date: 20140127
  Serious: Yes (Disabling)
  Sender: FDA-Public Use
  Company Number: 1520412

PATIENT
  Sex: Female

DRUGS (1)
  1. NALBUPHINE [Suspect]
     Indication: PRODUCT USED FOR UNKNOWN INDICATION

REACTIONS (5)
  - Drug hypersensitivity [None]
  - Dysphonia [None]
  - Aphonia [None]
  - Hypoaesthesia [None]
  - Feeling cold [None]
